FAERS Safety Report 7148611-7 (Version None)
Quarter: 2010Q4

REPORT INFORMATION
  Report Type: 
  Country: None (occurrence: None)
  Receive Date: 20101209
  Receipt Date: 20100811
  Transmission Date: 20110411
  Serious: No
  Sender: FDA-Public Use
  Company Number: A0862712A

PATIENT
  Age: 63 Year
  Sex: Female

DRUGS (1)
  1. AVANDAMET [Suspect]
     Dosage: 4MG TWICE PER DAY
     Route: 048
     Dates: start: 19950101, end: 19980101

REACTIONS (2)
  - DIZZINESS [None]
  - MIGRAINE [None]
